FAERS Safety Report 7304968-5 (Version None)
Quarter: 2011Q1

REPORT INFORMATION
  Report Type: 
  Country: None (occurrence: None)
  Receive Date: 20110222
  Receipt Date: 20110215
  Transmission Date: 20110831
  Serious: Yes (Life-Threatening, Hospitalization)
  Sender: FDA-Public Use
  Company Number: US-BRISTOL-MYERS SQUIBB COMPANY-15531312

PATIENT
  Age: 55 Year
  Sex: Female
  Weight: 61 kg

DRUGS (12)
  1. CISPLATIN [Suspect]
     Indication: NON-SMALL CELL LUNG CANCER STAGE III
     Route: 042
     Dates: start: 20100201, end: 20100315
  2. SIMVASTATIN [Concomitant]
     Indication: HYPERCHOLESTEROLAEMIA
  3. VITAMIN D [Concomitant]
     Indication: OSTEOPOROSIS
  4. PEMETREXED DISODIUM [Suspect]
     Indication: NON-SMALL CELL LUNG CANCER STAGE III
     Dosage: 01FEB10-15MAR10 43 DAYS. 13APR10-ONG LAST DOSE:22JUN10.
     Route: 042
     Dates: start: 20100201
  5. ALBUTEROL [Concomitant]
     Indication: EMPHYSEMA
  6. CLOPIDOGREL BISULFATE [Concomitant]
     Indication: HYPERCHOLESTEROLAEMIA
  7. SALMETEROL + FLUTICASONE [Concomitant]
     Indication: EMPHYSEMA
  8. LEVOFLOXACIN [Concomitant]
     Indication: PYREXIA
     Dates: start: 20110121
  9. MONTELUKAST SODIUM [Concomitant]
     Indication: EMPHYSEMA
  10. LORAZEPAM [Concomitant]
     Indication: ANXIETY
     Dates: start: 20100526
  11. TIOTROPIUM BROMIDE [Concomitant]
     Indication: EMPHYSEMA
  12. CITALOPRAM HYDROBROMIDE [Concomitant]
     Indication: ANXIETY
     Dates: start: 20100526

REACTIONS (1)
  - PERICARDIAL EFFUSION [None]
